FAERS Safety Report 4642149-4 (Version None)
Quarter: 2005Q2

REPORT INFORMATION
  Report Type: 
  Country: None (occurrence: None)
  Receive Date: 20050421
  Receipt Date: 20050405
  Transmission Date: 20051028
  Serious: Yes (Death)
  Sender: FDA-Public Use
  Company Number: 200551001824

PATIENT
  Age: 42 Year
  Sex: Male

DRUGS (1)
  1. FENTANYL TRANSDERMAL SYSTEM (75 MCG/HR) [Suspect]
     Dosage: 75 MCG/HR; X1; TDER
     Route: 062
     Dates: start: 20050404

REACTIONS (1)
  - INTENTIONAL MISUSE [None]
